FAERS Safety Report 22388890 (Version 2)
Quarter: 2023Q2

REPORT INFORMATION
  Report Type: Spontaneous
  Country: US (occurrence: US)
  Receive Date: 20230531
  Receipt Date: 20230626
  Transmission Date: 20230722
  Serious: No
  Sender: FDA-Public Use
  Company Number: US-PFIZER INC-202300204226

PATIENT
  Age: 15 Year
  Sex: Male
  Weight: 63.5 kg

DRUGS (1)
  1. GENOTROPIN [Suspect]
     Active Substance: SOMATROPIN
     Indication: Growth hormone deficiency
     Dosage: 4 MG, DAILY
     Dates: start: 202305

REACTIONS (7)
  - Incorrect dose administered by device [Unknown]
  - Device mechanical issue [Unknown]
  - Device difficult to use [Unknown]
  - Drug dose omission by device [Unknown]
  - Device breakage [Unknown]
  - Device failure [Unknown]
  - Device power source issue [Unknown]

NARRATIVE: CASE EVENT DATE: 20230501
